FAERS Safety Report 15133164 (Version 1)
Quarter: 2018Q3

REPORT INFORMATION
  Report Type: Spontaneous
  Country: AU (occurrence: AU)
  Receive Date: 20180712
  Receipt Date: 20180712
  Transmission Date: 20181010
  Serious: Yes (Other)
  Sender: FDA-Public Use
  Company Number: AU-TEVA-2018-AU-924651

PATIENT
  Sex: Female

DRUGS (5)
  1. QUETIAPINE FUMARATE. [Suspect]
     Active Substance: QUETIAPINE FUMARATE
     Route: 065
  2. CARBAMAZEPINE. [Suspect]
     Active Substance: CARBAMAZEPINE
     Route: 065
  3. DIAZEPAM. [Suspect]
     Active Substance: DIAZEPAM
     Route: 065
  4. TEMAZEPAM. [Suspect]
     Active Substance: TEMAZEPAM
     Route: 065
  5. PARACETAMOL [Suspect]
     Active Substance: ACETAMINOPHEN
     Route: 065

REACTIONS (2)
  - Hepatotoxicity [Unknown]
  - Overdose [Unknown]
